FAERS Safety Report 6334883-5 (Version None)
Quarter: 2009Q3

REPORT INFORMATION
  Report Type: 
  Country: None (occurrence: None)
  Receive Date: 20090828
  Receipt Date: 20090828
  Transmission Date: 20100115
  Serious: Yes (Hospitalization)
  Sender: FDA-Public Use
  Company Number: None

PATIENT
  Sex: Male
  Weight: 79.3795 kg

DRUGS (1)
  1. ENOXAPARIN SODIUM [Suspect]
     Indication: KNEE ARTHROPLASTY
     Dosage: 30 MG 2X'S/DAY
     Dates: start: 20090623, end: 20090626

REACTIONS (13)
  - ABDOMINAL PAIN UPPER [None]
  - ADHESION [None]
  - BURNING SENSATION [None]
  - CHILLS [None]
  - CONTUSION [None]
  - HAEMORRHAGE [None]
  - HYPERHIDROSIS [None]
  - INFECTION [None]
  - MALAISE [None]
  - NAUSEA [None]
  - OEDEMA PERIPHERAL [None]
  - PAIN [None]
  - PRODUCT CONTAMINATION [None]
